FAERS Safety Report 8274779-5 (Version None)
Quarter: 2012Q2

REPORT INFORMATION
  Report Type: 
  Country: None (occurrence: None)
  Receive Date: 20120411
  Receipt Date: 20120405
  Transmission Date: 20120825
  Serious: Yes (Life-Threatening, Hospitalization)
  Sender: FDA-Public Use
  Company Number: DE-ELI_LILLY_AND_COMPANY-DE201204001536

PATIENT
  Sex: Female

DRUGS (5)
  1. CARBOPLATIN [Concomitant]
  2. VITAMINS NOS [Concomitant]
  3. DEXAMETHASONE [Concomitant]
  4. ANTIEMETICS AND ANTINAUSEANTS [Concomitant]
  5. ALIMTA [Suspect]
     Indication: NON-SMALL CELL LUNG CANCER STAGE IV
     Dosage: UNK
     Route: 042
     Dates: start: 20120201, end: 20120301

REACTIONS (3)
  - LIVER FUNCTION TEST ABNORMAL [None]
  - NAUSEA [None]
  - GENERAL PHYSICAL HEALTH DETERIORATION [None]
